FAERS Safety Report 6150761-9 (Version None)
Quarter: 2009Q2

REPORT INFORMATION
  Report Type: 
  Country: None (occurrence: None)
  Receive Date: 20090409
  Receipt Date: 20090327
  Transmission Date: 20091009
  Serious: Yes (Other)
  Sender: FDA-Public Use
  Company Number: DE-GENENTECH-280502

PATIENT
  Sex: Female

DRUGS (1)
  1. HERCEPTIN [Suspect]
     Indication: BREAST CANCER METASTATIC
     Dosage: 2 MG/KG, UNK
     Route: 065
     Dates: start: 20060404

REACTIONS (2)
  - GLOSSODYNIA [None]
  - PALMAR ERYTHEMA [None]
